FAERS Safety Report 16306503 (Version 2)
Quarter: 2021Q1

REPORT INFORMATION
  Report Type: Spontaneous
  Country: US (occurrence: US)
  Receive Date: 20190513
  Receipt Date: 20210218
  Transmission Date: 20210419
  Serious: Yes (Other)
  Sender: FDA-Public Use
  Company Number: US-ASTRAZENECA-2019SE65885

PATIENT
  Age: 21094 Day
  Sex: Male
  Weight: 70.3 kg

DRUGS (105)
  1. NEXIUM [Suspect]
     Active Substance: ESOMEPRAZOLE MAGNESIUM
     Indication: GASTROOESOPHAGEAL REFLUX DISEASE
     Route: 048
     Dates: start: 200301, end: 201307
  2. PREVACID [Suspect]
     Active Substance: LANSOPRAZOLE
     Indication: GASTROOESOPHAGEAL REFLUX DISEASE
     Route: 065
     Dates: start: 200301, end: 201307
  3. MAALOX ANTACID [Concomitant]
     Active Substance: ALUMINUM HYDROXIDE\DIMETHICONE\MAGNESIUM HYDROXIDE
  4. MYLANTA [Concomitant]
     Active Substance: ALUMINUM HYDROXIDE\DIMETHICONE\MAGNESIUM HYDROXIDE
  5. HYDROCORTISONE. [Concomitant]
     Active Substance: HYDROCORTISONE
  6. PREDNISOLONE. [Concomitant]
     Active Substance: PREDNISOLONE
  7. PENICILLIN [Concomitant]
     Active Substance: PENICILLIN
  8. ZOCOR [Concomitant]
     Active Substance: SIMVASTATIN
  9. AMBIEN [Concomitant]
     Active Substance: ZOLPIDEM TARTRATE
  10. CEPHALEXIN. [Concomitant]
     Active Substance: CEPHALEXIN
  11. ISOPTO HYOSCINE [Concomitant]
     Active Substance: SCOPOLAMINE HYDROBROMIDE
  12. AMITRIPTYLINE [Concomitant]
     Active Substance: AMITRIPTYLINE
  13. TEGRETOL [Concomitant]
     Active Substance: CARBAMAZEPINE
  14. METOPROLOL. [Concomitant]
     Active Substance: METOPROLOL
  15. BACIT/ POLYMY [Concomitant]
  16. PROTONIX [Suspect]
     Active Substance: PANTOPRAZOLE SODIUM
     Indication: GASTROOESOPHAGEAL REFLUX DISEASE
     Route: 065
     Dates: start: 20050128, end: 20150613
  17. LISINOPRIL. [Concomitant]
     Active Substance: LISINOPRIL
     Indication: HYPERTENSION
  18. COREG [Concomitant]
     Active Substance: CARVEDILOL
  19. OXYCONTIN [Concomitant]
     Active Substance: OXYCODONE HYDROCHLORIDE
  20. METHYLPHENIDATE. [Concomitant]
     Active Substance: METHYLPHENIDATE
  21. CARISOPRODOL. [Concomitant]
     Active Substance: CARISOPRODOL
  22. FLUTICASONE. [Concomitant]
     Active Substance: FLUTICASONE
  23. FERRITIN [Concomitant]
     Active Substance: FERRITIN
  24. HEPARIN [Concomitant]
     Active Substance: HEPARIN SODIUM
  25. NEXIUM [Suspect]
     Active Substance: ESOMEPRAZOLE MAGNESIUM
     Indication: GASTROOESOPHAGEAL REFLUX DISEASE
     Route: 048
     Dates: start: 20101219, end: 20110124
  26. PRILOSEC OTC [Suspect]
     Active Substance: OMEPRAZOLE MAGNESIUM
     Indication: GASTROOESOPHAGEAL REFLUX DISEASE
     Route: 048
     Dates: start: 200301, end: 201307
  27. COMPAZINE [Concomitant]
     Active Substance: PROCHLORPERAZINE MALEATE
  28. FENTANYL. [Concomitant]
     Active Substance: FENTANYL
  29. DILAUDID [Concomitant]
     Active Substance: HYDROMORPHONE HYDROCHLORIDE
  30. CIPRO [Concomitant]
     Active Substance: CIPROFLOXACIN HYDROCHLORIDE
  31. MILK OF MAGNESIA [Concomitant]
     Active Substance: MAGNESIUM HYDROXIDE
  32. NEOMYCIN. [Concomitant]
     Active Substance: NEOMYCIN
  33. DOCQLACE [Concomitant]
     Active Substance: DOCUSATE SODIUM
  34. HYDRALAZINE [Concomitant]
     Active Substance: HYDRALAZINE HYDROCHLORIDE
  35. NEO/ POLY/ HC [Concomitant]
  36. PHENERGAN [Concomitant]
     Active Substance: PROMETHAZINE HYDROCHLORIDE
  37. SOLU?MEDROL [Concomitant]
     Active Substance: METHYLPREDNISOLONE SODIUM SUCCINATE
  38. FLOMAX [Concomitant]
     Active Substance: TAMSULOSIN HYDROCHLORIDE
  39. HYOSCYAMINE. [Concomitant]
     Active Substance: HYOSCYAMINE
  40. ASPIRIN. [Concomitant]
     Active Substance: ASPIRIN
  41. DIAZEPAM. [Concomitant]
     Active Substance: DIAZEPAM
  42. MORPHINE [Concomitant]
     Active Substance: MORPHINE
  43. NITROSTAT [Concomitant]
     Active Substance: NITROGLYCERIN
  44. HYDROXYZINE PAMOATE. [Concomitant]
     Active Substance: HYDROXYZINE PAMOATE
  45. SULFAMETH/ TRIMETHOPRIM [Concomitant]
  46. TERAZOSIN [Concomitant]
     Active Substance: TERAZOSIN HYDROCHLORIDE
  47. BISACODYL. [Concomitant]
     Active Substance: BISACODYL
  48. VICODIN [Concomitant]
     Active Substance: ACETAMINOPHEN\HYDROCODONE BITARTRATE
  49. WELLBUTRIN [Concomitant]
     Active Substance: BUPROPION HYDROCHLORIDE
  50. TUMS [Concomitant]
     Active Substance: CALCIUM CARBONATE
  51. CYCLOBENZAPRINE. [Concomitant]
     Active Substance: CYCLOBENZAPRINE
  52. MARINOL [Concomitant]
     Active Substance: DRONABINOL
  53. SODIUM BICARBONATE. [Concomitant]
     Active Substance: SODIUM BICARBONATE
  54. ACETYLCYSTEINE. [Concomitant]
     Active Substance: ACETYLCYSTEINE
  55. ECONAZOLE. [Concomitant]
     Active Substance: ECONAZOLE NITRATE
  56. MUCINEX [Concomitant]
     Active Substance: GUAIFENESIN
  57. NYSTATIN. [Concomitant]
     Active Substance: NYSTATIN
  58. PROCHLORPER [Concomitant]
  59. PRILOSEC [Suspect]
     Active Substance: OMEPRAZOLE MAGNESIUM
     Indication: GASTROOESOPHAGEAL REFLUX DISEASE
     Dosage: GENERIC? 10?20 DAILY
     Route: 065
     Dates: start: 20081216, end: 20150708
  60. PEPCID [Concomitant]
     Active Substance: FAMOTIDINE
  61. ZANTAC [Concomitant]
     Active Substance: RANITIDINE HYDROCHLORIDE
  62. AMOXICILLIN. [Concomitant]
     Active Substance: AMOXICILLIN
  63. VITAMIN D [Concomitant]
     Active Substance: VITAMIN D NOS
  64. ENULOSE [Concomitant]
     Active Substance: LACTULOSE
  65. ZOSYN [Concomitant]
     Active Substance: PIPERACILLIN SODIUM\TAZOBACTAM SODIUM
  66. COMBIVENT RESPIMAT [Concomitant]
     Active Substance: ALBUTEROL SULFATE\IPRATROPIUM BROMIDE
  67. XARELTO [Concomitant]
     Active Substance: RIVAROXABAN
  68. FARESTON [Concomitant]
     Active Substance: TOREMIFENE CITRATE
  69. VENTOLIN HFA [Concomitant]
     Active Substance: ALBUTEROL SULFATE
  70. PREVACID [Suspect]
     Active Substance: LANSOPRAZOLE
     Indication: GASTROOESOPHAGEAL REFLUX DISEASE
     Dosage: GENERIC
     Route: 065
     Dates: start: 20111221, end: 20120910
  71. IMITREX [Concomitant]
     Active Substance: SUMATRIPTAN SUCCINATE
     Indication: MIGRAINE
  72. IBUPROFEN. [Concomitant]
     Active Substance: IBUPROFEN
  73. REMICADE [Concomitant]
     Active Substance: INFLIXIMAB
  74. LEVBID [Concomitant]
     Active Substance: HYOSCYAMINE SULFATE
  75. BENTYL [Concomitant]
     Active Substance: DICYCLOMINE HYDROCHLORIDE
  76. LAMICTAL [Concomitant]
     Active Substance: LAMOTRIGINE
  77. AUGMENTIN [Concomitant]
     Active Substance: AMOXICILLIN\CLAVULANATE POTASSIUM
  78. SENNA?DOCUSATE [Concomitant]
     Active Substance: DOCUSATE SODIUM\SENNOSIDES
  79. IRON [Concomitant]
     Active Substance: IRON
  80. PRILOSEC [Suspect]
     Active Substance: OMEPRAZOLE MAGNESIUM
     Indication: GASTROOESOPHAGEAL REFLUX DISEASE
     Dosage: 20 MG 1X?2X DAILY
     Route: 048
     Dates: start: 20070731, end: 20101221
  81. PREVACID [Suspect]
     Active Substance: LANSOPRAZOLE
     Indication: GASTROOESOPHAGEAL REFLUX DISEASE
     Route: 065
     Dates: start: 20061005, end: 20130926
  82. PROTONIX [Suspect]
     Active Substance: PANTOPRAZOLE SODIUM
     Indication: GASTROOESOPHAGEAL REFLUX DISEASE
     Route: 065
     Dates: start: 200301, end: 201307
  83. PROTONIX [Suspect]
     Active Substance: PANTOPRAZOLE SODIUM
     Indication: GASTROOESOPHAGEAL REFLUX DISEASE
     Dosage: GENERIC
     Route: 065
     Dates: start: 20101025, end: 20161203
  84. OXYCODONE [Concomitant]
     Active Substance: OXYCODONE
     Indication: PAIN
  85. BACITRACIN?POLYMYXIN B [Concomitant]
     Active Substance: BACITRACIN ZINC\POLYMYXIN B SULFATE
  86. CODEINE [Concomitant]
     Active Substance: CODEINE
  87. TRIAMCINOLONE [Concomitant]
     Active Substance: TRIAMCINOLONE
  88. SENNOSIDES. [Concomitant]
     Active Substance: SENNOSIDES
  89. FLOXIN [Concomitant]
     Active Substance: OFLOXACIN
  90. WARFARIN SODIUM. [Concomitant]
     Active Substance: WARFARIN SODIUM
  91. POTASSIUM CHLORIDE. [Concomitant]
     Active Substance: POTASSIUM CHLORIDE
  92. FLAGYL [Concomitant]
     Active Substance: METRONIDAZOLE\METRONIDAZOLE HYDROCHLORIDE
  93. POLYSPORIN [Concomitant]
     Active Substance: BACITRACIN ZINC\POLYMYXIN B SULFATE
  94. METOPROLOL SUCCINATE. [Concomitant]
     Active Substance: METOPROLOL SUCCINATE
  95. NEXIUM I.V. [Suspect]
     Active Substance: ESOMEPRAZOLE SODIUM
     Indication: GASTROOESOPHAGEAL REFLUX DISEASE
     Route: 042
     Dates: start: 20130419, end: 20130726
  96. PRILOSEC OTC [Suspect]
     Active Substance: OMEPRAZOLE MAGNESIUM
     Indication: GASTROOESOPHAGEAL REFLUX DISEASE
     Route: 048
     Dates: start: 20061124, end: 20080828
  97. LORAZEPAM. [Concomitant]
     Active Substance: LORAZEPAM
  98. ENTOCORT [Concomitant]
     Active Substance: BUDESONIDE
  99. ANUCORT [Concomitant]
  100. LABETALOL [Concomitant]
     Active Substance: LABETALOL\LABETALOL HYDROCHLORIDE
  101. ASACOL [Concomitant]
     Active Substance: MESALAMINE
  102. A/B OTIC [Concomitant]
  103. CODEINE SULFATE. [Concomitant]
     Active Substance: CODEINE SULFATE
  104. SODIUM CHLORIDE. [Concomitant]
     Active Substance: SODIUM CHLORIDE
  105. NIFEDIPINE. [Concomitant]
     Active Substance: NIFEDIPINE

REACTIONS (3)
  - Renal failure [Unknown]
  - Chronic kidney disease [Not Recovered/Not Resolved]
  - Acute kidney injury [Not Recovered/Not Resolved]

NARRATIVE: CASE EVENT DATE: 20120422
